FAERS Safety Report 12095718 (Version 2)
Quarter: 2016Q1

REPORT INFORMATION
  Report Type: Report from Study
  Country: KR (occurrence: KR)
  Receive Date: 20160220
  Receipt Date: 20160225
  Transmission Date: 20160526
  Serious: Yes (Hospitalization, Other)
  Sender: FDA-Public Use
  Company Number: KR-BRISTOL-MYERS SQUIBB COMPANY-BMS-2016-008882

PATIENT
  Age: 59 Year
  Sex: Female
  Weight: 43.1 kg

DRUGS (2)
  1. BLINDED NIVOLUMAB [Suspect]
     Active Substance: NIVOLUMAB
     Indication: GASTRIC CANCER
     Dosage: 3 MG/KG, Q2WK
     Route: 042
     Dates: start: 20151019
  2. BLINDED PLACEBO [Suspect]
     Active Substance: INVESTIGATIONAL PRODUCT
     Indication: GASTRIC CANCER
     Dosage: 3 MG/KG, Q2WK
     Route: 042
     Dates: start: 20151019

REACTIONS (1)
  - Ileus [Not Recovered/Not Resolved]

NARRATIVE: CASE EVENT DATE: 20160201
